FAERS Safety Report 6309181-6 (Version None)
Quarter: 2009Q3

REPORT INFORMATION
  Report Type: 
  Country: None (occurrence: None)
  Receive Date: 20090814
  Receipt Date: 20090626
  Transmission Date: 20100115
  Serious: No
  Sender: FDA-Public Use
  Company Number: A0791303A

PATIENT
  Age: 54 Year
  Sex: Male
  Weight: 97.3 kg

DRUGS (1)
  1. COREG CR [Suspect]
     Indication: DRUG USE FOR UNKNOWN INDICATION
     Dosage: 80MG UNKNOWN
     Route: 048

REACTIONS (2)
  - DYSPHAGIA [None]
  - FOREIGN BODY TRAUMA [None]
